FAERS Safety Report 9969359 (Version 2)
Quarter: 2014Q2

REPORT INFORMATION
  Report Type: Spontaneous
  Country: US (occurrence: US)
  Receive Date: 20140306
  Receipt Date: 20140423
  Transmission Date: 20141212
  Serious: No
  Sender: FDA-Public Use
  Company Number: US-009507513-1403USA001145

PATIENT
  Age: 60 Year
  Sex: Male
  Weight: 123.58 kg

DRUGS (6)
  1. VYTORIN [Suspect]
     Indication: DYSLIPIDAEMIA
     Dosage: TOTAL DAILY DOSE: 10/40
     Route: 048
     Dates: start: 20050722, end: 20140225
  2. TOPROL XL TABLETS [Concomitant]
     Indication: HYPERTENSION
     Dosage: TOTAL DAILY DOSE: 25MG
     Route: 048
  3. LOTREL [Concomitant]
     Indication: HYPERTENSION
     Dosage: TOTAL DAILY DOSE: 5/20MG
     Route: 048
  4. METFORMIN [Concomitant]
     Indication: TYPE 2 DIABETES MELLITUS
     Dosage: TOTAL DAILY DOSE: 2000MG
     Route: 048
  5. EFFEXOR XR [Concomitant]
     Indication: DEPRESSION
     Dosage: TOTAL DAILY DOSE: 150 MG
     Route: 048
  6. ANTARA [Concomitant]
     Indication: DYSLIPIDAEMIA
     Dosage: TOTAL DAILY DOSE: 130MG
     Route: 048

REACTIONS (6)
  - Skin irritation [Recovered/Resolved]
  - Skin exfoliation [Not Recovered/Not Resolved]
  - Pain in extremity [Not Recovered/Not Resolved]
  - Drug hypersensitivity [Unknown]
  - Skin fissures [Not Recovered/Not Resolved]
  - Oedema [Recovering/Resolving]
